FAERS Safety Report 17124083 (Version 1)
Quarter: 2019Q4

REPORT INFORMATION
  Report Type: Spontaneous
  Country: US (occurrence: US)
  Receive Date: 20191206
  Receipt Date: 20191206
  Transmission Date: 20200122
  Serious: No
  Sender: FDA-Public Use
  Company Number: US-ROCHE-2388755

PATIENT
  Sex: Male
  Weight: 77.18 kg

DRUGS (2)
  1. OCREVUS [Suspect]
     Active Substance: OCRELIZUMAB
     Indication: PRIMARY PROGRESSIVE MULTIPLE SCLEROSIS
     Dosage: INFUSION IS EVERY 6 MONTHS ;ONGOING: YES
     Route: 065
     Dates: start: 2017
  2. CELESTONE [Concomitant]
     Active Substance: BETAMETHASONE
     Indication: INFLAMMATION
     Dosage: DAILY ;ONGOING: YES
     Route: 048

REACTIONS (1)
  - Fatigue [Not Recovered/Not Resolved]
